FAERS Safety Report 13261823 (Version 4)
Quarter: 2018Q3

REPORT INFORMATION
  Report Type: Report from Study
  Country: None (occurrence: US)
  Receive Date: 20170222
  Receipt Date: 20180906
  Transmission Date: 20181010
  Serious: Yes (Hospitalization, Other)
  Sender: FDA-Public Use
  Company Number: US-ABBVIE-17P-163-1871962-00

PATIENT
  Age: 57 Year
  Sex: Female

DRUGS (13)
  1. IMBRUVICA [Suspect]
     Active Substance: IBRUTINIB
     Indication: PRODUCT USED FOR UNKNOWN INDICATION
     Route: 065
  2. VENCLEXTA [Suspect]
     Active Substance: VENETOCLAX
     Indication: CHRONIC LYMPHOCYTIC LEUKAEMIA
     Route: 048
     Dates: start: 20161209, end: 20161215
  3. VENCLEXTA [Suspect]
     Active Substance: VENETOCLAX
     Route: 048
     Dates: start: 20161223, end: 20161229
  4. AMBIEN [Concomitant]
     Active Substance: ZOLPIDEM TARTRATE
     Indication: SLEEP DISORDER
  5. VENCLEXTA [Suspect]
     Active Substance: VENETOCLAX
     Route: 048
     Dates: start: 20161216, end: 20161222
  6. LEVOFLOXACIN. [Concomitant]
     Active Substance: LEVOFLOXACIN
     Indication: ANTIBIOTIC THERAPY
  7. VENCLEXTA [Suspect]
     Active Substance: VENETOCLAX
     Route: 048
     Dates: start: 20161230, end: 20170105
  8. KEFLEX [Concomitant]
     Active Substance: CEPHALEXIN
     Indication: TONSILLITIS
  9. NORCO [Concomitant]
     Active Substance: ACETAMINOPHEN\HYDROCODONE BITARTRATE
     Indication: PAIN
  10. VENCLEXTA [Suspect]
     Active Substance: VENETOCLAX
     Route: 048
  11. LEVOTHYROXINE. [Concomitant]
     Active Substance: LEVOTHYROXINE
     Indication: THYROID DISORDER
  12. MIRTAZAPINE. [Concomitant]
     Active Substance: MIRTAZAPINE
     Indication: DEPRESSION
  13. VENCLEXTA [Suspect]
     Active Substance: VENETOCLAX
     Route: 048
     Dates: start: 20170106

REACTIONS (35)
  - Anxiety [Not Recovered/Not Resolved]
  - Liver disorder [Unknown]
  - Rhinorrhoea [Unknown]
  - Thyroid hormones increased [Recovered/Resolved]
  - Dizziness [Recovered/Resolved]
  - Nausea [Recovered/Resolved]
  - Lymphadenopathy [Recovered/Resolved]
  - Pain [Recovered/Resolved]
  - Blood pressure decreased [Recovered/Resolved]
  - Mental disorder [Unknown]
  - Feeling abnormal [Unknown]
  - Laboratory test abnormal [Recovered/Resolved]
  - Mucosal dryness [Unknown]
  - Migraine [Recovered/Resolved]
  - Platelet count decreased [Recovered/Resolved]
  - Influenza [Recovering/Resolving]
  - Lymph node pain [Not Recovered/Not Resolved]
  - Electrolyte imbalance [Unknown]
  - Tonsillar atrophy [Unknown]
  - Deafness neurosensory [Unknown]
  - Skin discolouration [Unknown]
  - Pruritus [Recovered/Resolved]
  - Urine output decreased [Not Recovered/Not Resolved]
  - Sneezing [Unknown]
  - Dry mouth [Not Recovered/Not Resolved]
  - Alopecia [Not Recovered/Not Resolved]
  - Red blood cell count decreased [Not Recovered/Not Resolved]
  - Myalgia [Recovered/Resolved]
  - Tonsillar hypertrophy [Unknown]
  - Poor quality sleep [Unknown]
  - Platelet count decreased [Not Recovered/Not Resolved]
  - Dyspnoea [Recovered/Resolved]
  - Deafness unilateral [Not Recovered/Not Resolved]
  - Choking [Unknown]
  - Anxiety [Unknown]

NARRATIVE: CASE EVENT DATE: 201612
